FAERS Safety Report 25541239 (Version 1)
Quarter: 2025Q3

REPORT INFORMATION
  Report Type: Spontaneous
  Country: US (occurrence: US)
  Receive Date: 20250710
  Receipt Date: 20250710
  Transmission Date: 20251021
  Serious: No
  Sender: ROCHE
  Company Number: US-ROCHE-10000329842

PATIENT
  Age: 61 Year
  Sex: Female
  Weight: 60.32 kg

DRUGS (7)
  1. ACTEMRA [Suspect]
     Active Substance: TOCILIZUMAB
     Indication: Rheumatoid arthritis
     Dosage: IN THE TOP OF THE THIGH
     Route: 058
     Dates: start: 20250629
  2. SULFASALAZINE [Concomitant]
     Active Substance: SULFASALAZINE
     Indication: Rheumatoid arthritis
     Dosage: 2 OF 500MG TABLETS IN THE MORNING AND AT NIGHT
     Route: 048
  3. COLCHICINE [Concomitant]
     Active Substance: COLCHICINE
     Indication: Cardiovascular event prophylaxis
     Dosage: AT NIGHT
     Route: 048
  4. FOLIC ACID [Concomitant]
     Active Substance: FOLIC ACID
     Dosage: 2 OF 1MG TABLETS DAILY
     Route: 048
  5. METHOTREXATE [Concomitant]
     Active Substance: METHOTREXATE
     Indication: Rheumatoid arthritis
     Dosage: 8 OF 2.5MG TABLETS, ONCE A WEEK
     Route: 048
  6. SIMVASTATIN [Concomitant]
     Active Substance: SIMVASTATIN
     Indication: Prophylaxis
     Dosage: AT NIGHT
     Route: 048
  7. RINVOQ [Concomitant]
     Active Substance: UPADACITINIB
     Indication: Rheumatoid arthritis
     Route: 048
     Dates: start: 20240701, end: 20250630

REACTIONS (5)
  - Product dose omission issue [Unknown]
  - Product preparation error [Unknown]
  - Injection site vesicles [Recovered/Resolved]
  - Device difficult to use [Unknown]
  - Device issue [Unknown]

NARRATIVE: CASE EVENT DATE: 20250629
